FAERS Safety Report 7006608 (Version 3)
Quarter: 2013Q1

REPORT INFORMATION
  Report Type: Spontaneous
  Country: CA (occurrence: CA)
  Receive Date: 20090529
  Receipt Date: 20130320
  Transmission Date: 20140127
  Serious: Yes (Other)
  Sender: FDA-Public Use
  Company Number: CA-ELI_LILLY_AND_COMPANY-CA200905003834

PATIENT
  Age: 15 Year
  Sex: Female
  Weight: 48 kg

DRUGS (10)
  1. OLANZAPINE [Suspect]
     Indication: ANOREXIA NERVOSA
     Dosage: 5 MG, EACH EVENING
  2. OLANZAPINE [Interacting]
     Dosage: 2.5 MG, UNK
  3. FLUOXETINE HYDROCHLORIDE [Interacting]
     Indication: ANXIETY
     Dosage: 20 MG, UNK
  4. FLUOXETINE HYDROCHLORIDE [Interacting]
     Dosage: 40 MG, UNK
  5. FLUOXETINE HYDROCHLORIDE [Interacting]
     Dosage: 60 MG, UNK
  6. CLONAZEPAM [Concomitant]
     Dosage: 0.5 MG, 2/D
  7. RISPERIDONE [Concomitant]
     Dosage: 0.25 MG, EACH EVENING
  8. RISPERIDONE [Concomitant]
     Dosage: 0.25 MG, 2/D
  9. RISPERIDONE [Concomitant]
     Dosage: 0.25 MG, EACH MORNING
  10. RISPERIDONE [Concomitant]
     Dosage: 0.5 MG, EACH EVENING

REACTIONS (3)
  - Electrocardiogram QT prolonged [Recovered/Resolved]
  - Drug interaction [Recovered/Resolved]
  - Off label use [Recovered/Resolved]
